FAERS Safety Report 4545242-X (Version None)
Quarter: 2004Q4

REPORT INFORMATION
  Report Type: 
  Country: None (occurrence: None)
  Receive Date: 20041222
  Receipt Date: 20040630
  Transmission Date: 20050328
  Serious: Yes (Hospitalization, Other)
  Sender: FDA-Public Use
  Company Number: USA040671495

PATIENT
  Age: 23 Year
  Sex: Female

DRUGS (4)
  1. HUMULIN R [Suspect]
     Dosage: 20 U AT BEDTIME
  2. HUMULIN N [Suspect]
     Dosage: UNK
     Route: 065
     Dates: end: 20010601
  3. HUMALOG [Suspect]
     Dosage: UNK
  4. ILETIN-PORK NPH INSULIN (INSULIN, ANIMAL) [Suspect]
     Dosage: UNK
     Dates: start: 19710101

REACTIONS (6)
  - BLOOD GLUCOSE DECREASED [None]
  - BLOOD GLUCOSE INCREASED [None]
  - COMA [None]
  - DERMATITIS EXFOLIATIVE [None]
  - SKIN LESION [None]
  - SKIN REACTION [None]
